FAERS Safety Report 5848513-X (Version None)
Quarter: 2008Q3

REPORT INFORMATION
  Report Type: 
  Country: None (occurrence: None)
  Receive Date: 20080818
  Receipt Date: 20080528
  Transmission Date: 20090109
  Serious: No
  Sender: FDA-Public Use
  Company Number: US-BAYER-200812437BCC

PATIENT
  Age: 65 Year
  Sex: Female
  Weight: 86 kg

DRUGS (6)
  1. ALEVE [Suspect]
     Indication: BACK PAIN
     Route: 048
  2. THYROID MEDICATION [Concomitant]
     Route: 065
  3. CALCIUM [Concomitant]
  4. ONE A DAY WOMEN'S [Concomitant]
  5. MEMBERS MARK LUTEIN [Concomitant]
  6. COZIMINE DS [Concomitant]

REACTIONS (3)
  - ARTHRALGIA [None]
  - BACK PAIN [None]
  - PAIN IN EXTREMITY [None]
